FAERS Safety Report 22035562 (Version 1)
Quarter: 2023Q1

REPORT INFORMATION
  Report Type: Spontaneous
  Country: DE (occurrence: DE)
  Receive Date: 20230224
  Receipt Date: 20230224
  Transmission Date: 20230418
  Serious: Yes (Death, Other)
  Sender: FDA-Public Use
  Company Number: DE-DSJP-DSE-2023-106599

PATIENT
  Sex: Female
  Weight: 54 kg

DRUGS (7)
  1. ENHERTU [Suspect]
     Active Substance: FAM-TRASTUZUMAB DERUXTECAN-NXKI
     Indication: HER2 negative breast cancer
     Dosage: 5.4 MG/KG, ONCE EVERY 3 WK (5.4 MG/KG BW, Q3W)
     Route: 065
     Dates: start: 20221206, end: 20230119
  2. ENHERTU [Suspect]
     Active Substance: FAM-TRASTUZUMAB DERUXTECAN-NXKI
     Indication: Breast cancer metastatic
  3. APIXABAN [Concomitant]
     Active Substance: APIXABAN
     Indication: Product used for unknown indication
     Dosage: 5 MG, BID (5 MG 1-0-1)
     Route: 065
  4. BISOPROLOL [Concomitant]
     Active Substance: BISOPROLOL
     Indication: Product used for unknown indication
     Dosage: 5 MG, BID (5 MG 1-0-1)
     Route: 065
  5. DIGITOXIN [Concomitant]
     Active Substance: DIGITOXIN
     Indication: Product used for unknown indication
     Dosage: 0.05 MG, QD (0.05 MG 1-0-0)
     Route: 065
  6. RAMIPRIL [Concomitant]
     Active Substance: RAMIPRIL
     Indication: Product used for unknown indication
     Dosage: 2.5 MG, QD (2.5 MG 1-0-0)
     Route: 065
  7. METFORMIN [Concomitant]
     Active Substance: METFORMIN HYDROCHLORIDE
     Indication: Product used for unknown indication
     Dosage: 1000 MG, BID (1000 MG 1-0-1)
     Route: 065

REACTIONS (7)
  - Interstitial lung disease [Fatal]
  - Leukocytosis [Unknown]
  - Aspiration [Unknown]
  - Chest pain [Unknown]
  - Hypoxia [Unknown]
  - Dyspnoea at rest [Unknown]
  - Disease progression [Unknown]

NARRATIVE: CASE EVENT DATE: 20230101
